FAERS Safety Report 10210017 (Version 1)
Quarter: 2014Q2

REPORT INFORMATION
  Report Type: Spontaneous
  Country: US (occurrence: US)
  Receive Date: 20140602
  Receipt Date: 20140602
  Transmission Date: 20141212
  Serious: No
  Sender: FDA-Public Use
  Company Number: US-009507513-1406USA000163

PATIENT
  Sex: 0

DRUGS (1)
  1. ZETIA [Suspect]
     Dosage: UNK
     Route: 048
     Dates: start: 20140523

REACTIONS (2)
  - Pain [Unknown]
  - Abdominal pain [Unknown]
